FAERS Safety Report 17471491 (Version 5)
Quarter: 2022Q2

REPORT INFORMATION
  Report Type: Report from Study
  Country: US (occurrence: US)
  Receive Date: 20200228
  Receipt Date: 20220506
  Transmission Date: 20220720
  Serious: Yes (Death, Hospitalization, Other)
  Sender: FDA-Public Use
  Company Number: US-ACADIA PHARMACEUTICALS INC.-ACA-2020-PIM-000625

PATIENT
  Age: 83 Year
  Sex: Male

DRUGS (1)
  1. NUPLAZID [Suspect]
     Active Substance: PIMAVANSERIN TARTRATE
     Indication: Parkinson^s disease
     Dosage: 34 MILLIGRAM, QD
     Route: 048
     Dates: start: 20200211, end: 20220419

REACTIONS (10)
  - Death [Fatal]
  - Clostridium difficile infection [Recovered/Resolved]
  - Pneumonia [Unknown]
  - Dyspnoea [Recovered/Resolved]
  - Soliloquy [Unknown]
  - Disorientation [Recovered/Resolved]
  - Irritability [Recovered/Resolved]
  - Aggression [Recovered/Resolved]
  - Confusional state [Not Recovered/Not Resolved]
  - Hallucination, visual [Unknown]

NARRATIVE: CASE EVENT DATE: 20200411
